FAERS Safety Report 4966994-0 (Version None)
Quarter: 2006Q2

REPORT INFORMATION
  Report Type: 
  Country: None (occurrence: None)
  Receive Date: 20060403
  Receipt Date: 20060320
  Transmission Date: 20061013
  Serious: Yes (Hospitalization)
  Sender: FDA-Public Use
  Company Number: 163-C5013-06030662

PATIENT
  Age: 74 Year
  Sex: Male
  Weight: 63.5 kg

DRUGS (13)
  1. REVLIMID [Suspect]
     Indication: MULTIPLE MYELOMA
     Dosage: 25 MG, QD ON DAYS 1-21, ORAL
     Route: 048
     Dates: start: 20060224, end: 20060316
  2. DEXAMETHASONE [Suspect]
     Indication: MULTIPLE MYELOMA
     Dosage: 40 MG, QD ON DAYS 1-4, 9-12, 17-20, ORAL
     Route: 048
     Dates: start: 20060224, end: 20060316
  3. LASIX [Concomitant]
  4. OMEPRAZOLE [Concomitant]
  5. MIRTAZAPINE [Concomitant]
  6. TERAZOSIN (TERAZOSIN) [Concomitant]
  7. NIACIN [Concomitant]
  8. ASPIRIN [Concomitant]
  9. MEGESTROL ACETATE [Concomitant]
  10. PREDNISONE TAB [Concomitant]
  11. ACYCLOVIR [Concomitant]
  12. LOVASTATIN [Concomitant]
  13. METOPROLOL (METOPROLOL) [Concomitant]

REACTIONS (9)
  - ANAEMIA [None]
  - BUNDLE BRANCH BLOCK LEFT [None]
  - CHRONIC OBSTRUCTIVE PULMONARY DISEASE [None]
  - HYPOTENSION [None]
  - LEUKOPENIA [None]
  - PYREXIA [None]
  - RALES [None]
  - TACHYCARDIA [None]
  - THROMBOCYTOPENIA [None]
